FAERS Safety Report 25277666 (Version 1)
Quarter: 2025Q2

REPORT INFORMATION
  Report Type: Spontaneous
  Country: US (occurrence: None)
  Receive Date: 20250506
  Receipt Date: 20250506
  Transmission Date: 20250717
  Serious: Yes (Hospitalization)
  Sender: FDA-CTU
  Company Number: None

PATIENT
  Sex: Male

DRUGS (4)
  1. HUMIRA [Suspect]
     Active Substance: ADALIMUMAB
     Indication: Hidradenitis
     Dosage: FREQUENCY : WEEKLY;?
     Route: 058
     Dates: start: 20250411
  2. HUMIRA CF PEN-CD/UC/HS START [Concomitant]
  3. NALOXONE HCL SPR 4MG [Concomitant]
  4. OXYCODONE [Concomitant]
     Active Substance: OXYCODONE

REACTIONS (5)
  - Myocardial infarction [None]
  - Therapy interrupted [None]
  - Inappropriate schedule of product administration [None]
  - Hidradenitis [None]
  - Condition aggravated [None]
